FAERS Safety Report 7158055-X (Version None)
Quarter: 2010Q4

REPORT INFORMATION
  Report Type: 
  Country: None (occurrence: None)
  Receive Date: 20101214
  Receipt Date: 20100408
  Transmission Date: 20110411
  Serious: No
  Sender: FDA-Public Use
  Company Number: US-ASTRAZENECA-2010SE15486

PATIENT
  Age: 61 Year
  Sex: Female
  Weight: 90.3 kg

DRUGS (3)
  1. CRESTOR [Suspect]
     Dosage: DAILY
     Route: 048
     Dates: start: 20091001, end: 20091101
  2. THYROID MEDICATION [Concomitant]
     Indication: HYPOTHYROIDISM
  3. OMEPRAZOLE [Concomitant]

REACTIONS (5)
  - AMNESIA [None]
  - DYSPNOEA [None]
  - HEADACHE [None]
  - MOOD ALTERED [None]
  - NAUSEA [None]
